FAERS Safety Report 5790278-4 (Version None)
Quarter: 2008Q2

REPORT INFORMATION
  Report Type: 
  Country: None (occurrence: None)
  Receive Date: 20080626
  Receipt Date: 20080215
  Transmission Date: 20081010
  Serious: No
  Sender: FDA-Public Use
  Company Number: A0707448A

PATIENT
  Sex: Female
  Weight: 90 kg

DRUGS (1)
  1. ALLI [Suspect]
     Indication: DRUG USE FOR UNKNOWN INDICATION
     Route: 048

REACTIONS (3)
  - OBSESSIVE THOUGHTS [None]
  - STRESS [None]
  - WEIGHT INCREASED [None]
